FAERS Safety Report 26103714 (Version 1)
Quarter: 2025Q4

REPORT INFORMATION
  Report Type: Spontaneous
  Country: US (occurrence: US)
  Receive Date: 20251129
  Receipt Date: 20251129
  Transmission Date: 20260118
  Serious: No
  Sender: ABBVIE
  Company Number: US-ABBVIE-6562163

PATIENT
  Age: 75 Year
  Sex: Female
  Weight: 72.574 kg

DRUGS (3)
  1. RESTASIS [Suspect]
     Active Substance: CYCLOSPORINE
     Indication: Lacrimation increased
     Dosage: FREQUENCY TEXT: 1 DROP EACH EYE TWICE A DAY
     Route: 047
     Dates: start: 2023, end: 2024
  2. HYDROCHLOROTHIAZIDE [Concomitant]
     Active Substance: HYDROCHLOROTHIAZIDE
     Indication: Product used for unknown indication
     Dosage: ONCE A DAY
  3. CEQUA [Concomitant]
     Active Substance: CYCLOSPORINE
     Indication: Lacrimation increased
     Dosage: UNKNOWN
     Dates: start: 2024

REACTIONS (2)
  - Lacrimation increased [Unknown]
  - Drug ineffective [Not Recovered/Not Resolved]

NARRATIVE: CASE EVENT DATE: 20230101
